FAERS Safety Report 12211979 (Version 3)
Quarter: 2016Q2

REPORT INFORMATION
  Report Type: Report from Study
  Country: US (occurrence: US)
  Receive Date: 20160325
  Receipt Date: 20160511
  Transmission Date: 20160815
  Serious: Yes (Disabling)
  Sender: FDA-Public Use
  Company Number: US-SA-2015SA102848

PATIENT
  Age: 41 Year
  Sex: Female

DRUGS (2)
  1. LEMTRADA [Suspect]
     Active Substance: ALEMTUZUMAB
     Indication: MULTIPLE SCLEROSIS
     Dosage: DAILY FOR 5 DAYS
     Route: 041
     Dates: start: 20150713, end: 20150716
  2. LEMTRADA [Suspect]
     Active Substance: ALEMTUZUMAB
     Indication: MULTIPLE SCLEROSIS
     Route: 041
     Dates: start: 20150720, end: 20150720

REACTIONS (18)
  - Immune system disorder [Recovering/Resolving]
  - Skin fissures [Recovered/Resolved]
  - Fall [Not Recovered/Not Resolved]
  - Memory impairment [Not Recovered/Not Resolved]
  - Fatigue [Recovering/Resolving]
  - Gait disturbance [Recovering/Resolving]
  - Joint injury [Recovering/Resolving]
  - Nasopharyngitis [Not Recovered/Not Resolved]
  - Disability [Not Recovered/Not Resolved]
  - Temperature intolerance [Unknown]
  - Dry skin [Recovering/Resolving]
  - Haemorrhoids [Recovered/Resolved]
  - Asthenia [Unknown]
  - Ill-defined disorder [Recovered/Resolved]
  - Blood glucose increased [Recovering/Resolving]
  - Hyperhidrosis [Not Recovered/Not Resolved]
  - Urine abnormality [Unknown]
  - Acne [Recovering/Resolving]

NARRATIVE: CASE EVENT DATE: 2015
